FAERS Safety Report 7277786-4 (Version None)
Quarter: 2011Q1

REPORT INFORMATION
  Report Type: 
  Country: None (occurrence: None)
  Receive Date: 20110207
  Receipt Date: 20101222
  Transmission Date: 20110831
  Serious: No
  Sender: FDA-Public Use
  Company Number: A0900163A

PATIENT
  Age: 62 Year
  Sex: Female

DRUGS (14)
  1. UNSPECIFIED DRUG [Concomitant]
  2. GABAPENTIN [Concomitant]
  3. SYNTHROID [Concomitant]
  4. SAVELLA [Concomitant]
  5. ESTROGENIC SUBSTANCE [Concomitant]
  6. CRESTOR [Concomitant]
  7. OPANA (OXYMORPHONE HCL) [Concomitant]
  8. OLUX E FOAM (EMULSION AEROSOL FOAM) [Suspect]
     Indication: WOUND
     Dosage: 1APP TWICE PER DAY
     Route: 061
     Dates: start: 20080101
  9. TOPAMAX [Concomitant]
  10. ZYRTEC [Concomitant]
  11. SINGULAIR [Concomitant]
  12. ROBAXIN [Concomitant]
  13. ZANAFLEX [Concomitant]
  14. NEXIUM [Concomitant]

REACTIONS (5)
  - PAIN [None]
  - IMPAIRED HEALING [None]
  - PRODUCT QUALITY ISSUE [None]
  - BURNING SENSATION [None]
  - MEDICATION ERROR [None]
